FAERS Safety Report 5844101-X (Version None)
Quarter: 2008Q3

REPORT INFORMATION
  Report Type: 
  Country: None (occurrence: None)
  Receive Date: 20080813
  Receipt Date: 20080801
  Transmission Date: 20090109
  Serious: Yes (Other)
  Sender: FDA-Public Use
  Company Number: US-PFIZER INC-2008065083

PATIENT
  Sex: Female
  Weight: 122.5 kg

DRUGS (14)
  1. ZYVOX [Suspect]
     Indication: CELLULITIS
  2. MOBIC [Suspect]
  3. INSULIN HUMAN [Concomitant]
  4. INSULIN [Concomitant]
  5. VICODIN [Concomitant]
  6. METFORMIN HCL [Concomitant]
  7. METOPROLOL SUCCINATE [Concomitant]
  8. CLONIDINE [Concomitant]
  9. LEVOTHYROXINE SODIUM [Concomitant]
  10. FUROSEMIDE [Concomitant]
  11. WARFARIN SODIUM [Concomitant]
  12. PLAQUENIL [Concomitant]
  13. FOLIC ACID [Concomitant]
  14. PRINZIDE [Concomitant]

REACTIONS (8)
  - CONTUSION [None]
  - DRUG INEFFECTIVE [None]
  - FEELING HOT [None]
  - FLUSHING [None]
  - GASTROINTESTINAL DISORDER [None]
  - MALAISE [None]
  - RENAL FAILURE [None]
  - SKIN DISORDER [None]
